FAERS Safety Report 6942614-0 (Version None)
Quarter: 2010Q3

REPORT INFORMATION
  Report Type: 
  Country: None (occurrence: None)
  Receive Date: 20100823
  Receipt Date: 20100819
  Transmission Date: 20110219
  Serious: Yes (Other)
  Sender: FDA-Public Use
  Company Number: 2010SP037852

PATIENT
  Sex: Female

DRUGS (1)
  1. AERIUS (DESLORATADINE / 01398501 / ) [Suspect]
     Indication: MULTIPLE ALLERGIES
     Dosage: PO
     Route: 048

REACTIONS (3)
  - LOSS OF CONSCIOUSNESS [None]
  - NO THERAPEUTIC RESPONSE [None]
  - PALPITATIONS [None]
